FAERS Safety Report 24127087 (Version 1)
Quarter: 2024Q3

REPORT INFORMATION
  Report Type: Spontaneous
  Country: US (occurrence: None)
  Receive Date: 20240723
  Receipt Date: 20240723
  Transmission Date: 20241017
  Serious: Yes (Hospitalization)
  Sender: Public
  Company Number: None

PATIENT
  Age: 78 Year
  Sex: Male
  Weight: 75.8 kg

DRUGS (4)
  1. DARATUMUMAB\HYALURONIDASE-FIHJ [Suspect]
     Active Substance: DARATUMUMAB\HYALURONIDASE-FIHJ
     Dates: end: 20240308
  2. DEXAMETHASONE [Suspect]
     Active Substance: DEXAMETHASONE
     Dates: end: 20240315
  3. LENALIDOMIDE [Suspect]
     Active Substance: LENALIDOMIDE
     Dates: end: 20240312
  4. LENALIDOMIDE [Suspect]
     Active Substance: LENALIDOMIDE

REACTIONS (1)
  - Basal cell carcinoma [None]

NARRATIVE: CASE EVENT DATE: 20240322
